FAERS Safety Report 6017362-4 (Version None)
Quarter: 2008Q4

REPORT INFORMATION
  Report Type: 
  Country: None (occurrence: None)
  Receive Date: 20081219
  Receipt Date: 20081209
  Transmission Date: 20090506
  Serious: Yes (Death)
  Sender: FDA-Public Use
  Company Number: 1-17071428

PATIENT
  Age: 81 Year
  Sex: Female

DRUGS (1)
  1. KINLYTIC [Suspect]
     Indication: ISCHAEMIC STROKE
     Dosage: 470,000 IU, ONCE, INTRA-ARTERIAL
     Route: 013

REACTIONS (2)
  - BRAIN HERNIATION [None]
  - MYOCARDIAL INFARCTION [None]
